FAERS Safety Report 25516149 (Version 3)
Quarter: 2025Q3

REPORT INFORMATION
  Report Type: Spontaneous
  Country: US (occurrence: US)
  Receive Date: 20250704
  Receipt Date: 20250908
  Transmission Date: 20251021
  Serious: No
  Sender: BIOGEN
  Company Number: US-BIOGEN-2025BI01306931

PATIENT
  Sex: Male

DRUGS (3)
  1. VUMERITY [Suspect]
     Active Substance: DIROXIMEL FUMARATE
     Indication: Multiple sclerosis
     Route: 050
     Dates: start: 20250402
  2. VUMERITY [Suspect]
     Active Substance: DIROXIMEL FUMARATE
     Route: 050
     Dates: start: 202504, end: 202507
  3. KESIMPTA [Concomitant]
     Active Substance: OFATUMUMAB
     Route: 050

REACTIONS (9)
  - Throat irritation [Not Recovered/Not Resolved]
  - Acne [Not Recovered/Not Resolved]
  - Ingrown hair [Not Recovered/Not Resolved]
  - Skin haemorrhage [Unknown]
  - Malaise [Unknown]
  - Memory impairment [Unknown]
  - Multiple sclerosis [Unknown]
  - Flushing [Recovered/Resolved]
  - Pruritus [Recovered/Resolved]

NARRATIVE: CASE EVENT DATE: 20250101
